FAERS Safety Report 4595629-4 (Version None)
Quarter: 2005Q1

REPORT INFORMATION
  Report Type: 
  Country: None (occurrence: None)
  Receive Date: 20050224
  Receipt Date: 20050224
  Transmission Date: 20050727
  Serious: Yes (Life-Threatening)
  Sender: FDA-Public Use
  Company Number: 2005-125342-NL

PATIENT
  Age: 40 Year
  Sex: Female

DRUGS (1)
  1. MIRTAZAPINE [Suspect]
     Indication: DEPRESSION
     Dosage: 30 MG, ORAL
     Route: 048
     Dates: start: 20050201, end: 20050201

REACTIONS (4)
  - BLOOD PROLACTIN INCREASED [None]
  - PITUITARY ENLARGEMENT [None]
  - PITUITARY TUMOUR BENIGN [None]
  - TONIC CONVULSION [None]
